FAERS Safety Report 6140529-1 (Version None)
Quarter: 2009Q2

REPORT INFORMATION
  Report Type: 
  Country: None (occurrence: None)
  Receive Date: 20090402
  Receipt Date: 20071121
  Transmission Date: 20091009
  Serious: Yes (Death, Disabling)
  Sender: FDA-Public Use
  Company Number: US-ASTRAZENECA-2006UW21597

PATIENT
  Age: 16463 Day
  Sex: Male

DRUGS (13)
  1. SEROQUEL [Suspect]
     Indication: INSOMNIA
     Route: 048
     Dates: start: 19990615, end: 20010404
  2. CLOZARIL [Concomitant]
  3. LORAZEPAM [Concomitant]
  4. TRAZODONE [Concomitant]
  5. ZYPREXA [Concomitant]
     Dates: start: 20010301
  6. CLONAZEPAM [Concomitant]
     Dates: start: 19990601
  7. HYDROXYZINE [Concomitant]
     Dates: start: 19990601
  8. RISPERDAL [Concomitant]
     Dates: start: 19990601
  9. ACCOLATE [Concomitant]
     Dates: start: 19990701
  10. THEOPHYLLINE [Concomitant]
     Dates: start: 19990701
  11. CHLORTHALIDONE [Concomitant]
     Dates: start: 20000101
  12. DOCUSATE SODIUM [Concomitant]
     Dates: start: 19990701
  13. ERYTHROMYCIN [Concomitant]
     Dates: start: 19991201

REACTIONS (2)
  - DEATH [None]
  - DIABETES MELLITUS [None]
